FAERS Safety Report 16388119 (Version 3)
Quarter: 2019Q2

REPORT INFORMATION
  Report Type: Report from Study
  Country: CN (occurrence: CN)
  Receive Date: 20190604
  Receipt Date: 20190625
  Transmission Date: 20190711
  Serious: Yes (Hospitalization)
  Sender: FDA-Public Use
  Company Number: CN-TAKEDA-2019TUS034217

PATIENT
  Age: 56 Year
  Sex: Female
  Weight: 51 kg

DRUGS (10)
  1. QUETIAPINE. [Concomitant]
     Active Substance: QUETIAPINE
     Dosage: 100 MILLIGRAM, QD
     Route: 048
     Dates: start: 20190615, end: 20190616
  2. LORAZEPAM. [Concomitant]
     Active Substance: LORAZEPAM
     Indication: INSOMNIA
     Dosage: UNK, QD
     Route: 048
     Dates: start: 20190509, end: 20190523
  3. QUETIAPINE. [Concomitant]
     Active Substance: QUETIAPINE
     Dosage: 0.4 GRAM, QD
     Route: 048
     Dates: start: 20190524, end: 20190526
  4. QUETIAPINE. [Concomitant]
     Active Substance: QUETIAPINE
     Dosage: 0.2 GRAM, QD
     Route: 048
     Dates: start: 20190617
  5. VORTIOXETINE. [Suspect]
     Active Substance: VORTIOXETINE
     Indication: MAJOR DEPRESSION
     Dosage: 10 MILLIGRAM, QD
     Route: 048
     Dates: start: 20190215, end: 201905
  6. VENLAFAXINE [Concomitant]
     Active Substance: VENLAFAXINE HYDROCHLORIDE
     Indication: MAJOR DEPRESSION
     Dosage: UNK
     Route: 048
     Dates: start: 20181227
  7. QUETIAPINE. [Concomitant]
     Active Substance: QUETIAPINE
     Indication: ANXIETY DISORDER
     Dosage: 50 MILLIGRAM, QD
     Route: 048
     Dates: start: 20181210, end: 20190523
  8. QUETIAPINE. [Concomitant]
     Active Substance: QUETIAPINE
     Dosage: 0.2 GRAM, QD
     Dates: start: 20190527, end: 20190613
  9. QUETIAPINE. [Concomitant]
     Active Substance: QUETIAPINE
     Dosage: 50 MILLIGRAM, QD
     Route: 048
     Dates: start: 20190614, end: 20190614
  10. LORAZEPAM. [Concomitant]
     Active Substance: LORAZEPAM
     Dosage: 2 MILLIGRAM, QD
     Route: 048
     Dates: start: 20190524

REACTIONS (2)
  - Abdominal discomfort [Recovered/Resolved]
  - Depression [Not Recovered/Not Resolved]

NARRATIVE: CASE EVENT DATE: 201904
